FAERS Safety Report 16418996 (Version 5)
Quarter: 2019Q3

REPORT INFORMATION
  Report Type: Spontaneous
  Country: JP (occurrence: JP)
  Receive Date: 20190612
  Receipt Date: 20190927
  Transmission Date: 20191004
  Serious: Yes (Hospitalization, Other)
  Sender: FDA-Public Use
  Company Number: JP-TEVA-201906_00004842

PATIENT
  Age: 79 Year
  Sex: Female
  Weight: 61 kg

DRUGS (6)
  1. ESOMEPRAZOLE. [Suspect]
     Active Substance: ESOMEPRAZOLE MAGNESIUM
     Dosage: DOSAGE IS UNKNOWN
     Route: 065
  2. FUROSEMIDE. [Suspect]
     Active Substance: FUROSEMIDE
     Indication: CARDIAC FAILURE
     Route: 065
  3. OMEPRAZOLE. [Concomitant]
     Active Substance: OMEPRAZOLE
     Indication: CARDIAC FAILURE
     Dosage: DOSAGE IS UNKNOWN
     Route: 065
  4. TRICHLORMETHIAZIDE [Suspect]
     Active Substance: TRICHLORMETHIAZIDE
     Indication: CARDIAC FAILURE
     Dosage: RECEIVED FOR 2 YEARS
     Route: 065
  5. TAKEPRON INTRAVENOUS 30MG. [Suspect]
     Active Substance: LANSOPRAZOLE
     Indication: PRODUCT USED FOR UNKNOWN INDICATION
     Dosage: RECEIVED FOR 2 YEARS
     Route: 065
  6. THIAZIDE [Concomitant]
     Active Substance: UNSPECIFIED INGREDIENT
     Indication: CARDIAC FAILURE
     Dosage: DOSAGE IS UNKNOWN
     Route: 065

REACTIONS (13)
  - Hypocalcaemia [Recovered/Resolved]
  - Parathyroid disorder [Unknown]
  - Hypercalcaemia [Recovered/Resolved]
  - Renal hypertrophy [Unknown]
  - Hyponatraemia [Unknown]
  - Resting tremor [Unknown]
  - Vitamin D deficiency [Unknown]
  - Hypomagnesaemia [Recovered/Resolved]
  - High turnover osteopathy [Unknown]
  - Unmasking of previously unidentified disease [Recovered/Resolved]
  - Renal tubular disorder [Unknown]
  - Blood parathyroid hormone increased [Unknown]
  - Electrocardiogram QT prolonged [Unknown]
